FAERS Safety Report 8606713-X (Version None)
Quarter: 2012Q3

REPORT INFORMATION
  Report Type: 
  Country: None (occurrence: None)
  Receive Date: 20120809
  Receipt Date: 20120809
  Transmission Date: 20120928
  Serious: Yes (Life-Threatening, Hospitalization)
  Sender: FDA-Public Use
  Company Number: None

PATIENT
  Age: 69 Year
  Sex: Male
  Weight: 63.6 kg

DRUGS (1)
  1. EPOETIN ALFA,RECOMBINANT [Suspect]
     Indication: NEPHROGENIC ANAEMIA
     Dosage: 6000 UNITS
     Dates: start: 20090507, end: 20120619

REACTIONS (5)
  - VOMITING [None]
  - HYPERTENSIVE CRISIS [None]
  - CONFUSIONAL STATE [None]
  - HEADACHE [None]
  - NAUSEA [None]
